FAERS Safety Report 8931641 (Version 3)
Quarter: 2013Q1

REPORT INFORMATION
  Report Type: Spontaneous
  Country: JP (occurrence: JP)
  Receive Date: 20121128
  Receipt Date: 20130201
  Transmission Date: 20140127
  Serious: Yes (Hospitalization)
  Sender: FDA-Public Use
  Company Number: JP-PFIZER INC-2012234800

PATIENT
  Age: 62 Year
  Sex: Female

DRUGS (25)
  1. TAKEPRON OD [Suspect]
     Indication: PROPHYLAXIS AGAINST GASTROINTESTINAL ULCER
     Dosage: 15 MG, 1X/DAY
     Route: 048
     Dates: start: 20070907, end: 20081121
  2. VFEND [Interacting]
     Indication: FUNGAL INFECTION
     Dosage: 600 MG, 1X/DAY, FOR THE FIRST 24H
  3. VFEND [Interacting]
     Dosage: 400 MG, 1X/DAY 2H AFTER BREAKFAST AND DINNER
  4. VFEND [Interacting]
     Dosage: 300 MG, 2X/DAY
     Route: 048
     Dates: start: 20071201, end: 20071201
  5. VFEND [Interacting]
     Dosage: 200 MG, 2X/DAY
     Route: 048
     Dates: start: 20071202, end: 20080312
  6. DIFLUCAN [Interacting]
     Indication: FUNGAL INFECTION
     Dosage: 100 MG, 1X/DAY
     Route: 048
     Dates: start: 20071106, end: 20071113
  7. PROGRAF [Interacting]
     Indication: SYSTEMIC LUPUS ERYTHEMATOSUS
     Dosage: 3 MG, 1X/DAY AFTER DINNER
     Route: 048
     Dates: start: 20071019, end: 20071028
  8. PROGRAF [Interacting]
     Dosage: 2 MG, 1X/DAY
     Route: 048
     Dates: start: 20071029, end: 20071104
  9. PROGRAF [Interacting]
     Dosage: 1 MG, 1X/DAY
     Route: 048
     Dates: start: 20071105, end: 20071205
  10. PROGRAF [Interacting]
     Dosage: 0.2 MG, 1X/DAY
     Route: 048
     Dates: start: 20071206, end: 20081121
  11. ITRIZOLE [Interacting]
     Indication: ORAL CANDIDIASIS
     Dosage: 200MG/DAY ON FIRST DAY
  12. ITRIZOLE [Interacting]
     Indication: FUNGAL INFECTION
     Dosage: 100 MG, 1X/DAY AFTER BREAKFAST
  13. ITRIZOLE [Interacting]
     Dosage: 200 MG, 1X/DAY
     Route: 048
     Dates: start: 20071029, end: 20071029
  14. ITRIZOLE [Interacting]
     Dosage: 100 MG, 1X/DAY
     Route: 048
     Dates: start: 20071030, end: 20071105
  15. ITRIZOLE [Interacting]
     Dosage: 100 MG, 1X/DAY
     Route: 048
     Dates: start: 20071114, end: 20071130
  16. BLOPRESS [Concomitant]
     Indication: HYPERTENSION
     Dosage: 4 MG, 1X/DAY
     Route: 048
     Dates: start: 20070907, end: 20081121
  17. PREDONINE [Concomitant]
     Indication: SYSTEMIC LUPUS ERYTHEMATOSUS
     Dosage: 60 MG, 1X/DAY
     Route: 048
     Dates: start: 20070907, end: 20071018
  18. PREDONINE [Concomitant]
     Dosage: 40 MG, 1X/DAY
     Route: 048
     Dates: start: 20071019, end: 20071115
  19. PREDONINE [Concomitant]
     Dosage: 25 MG, 1X/DAY
     Route: 048
     Dates: start: 20071116
  20. PREDONINE [Concomitant]
     Dosage: 15 MG, 1X/DAY
     Route: 048
  21. PREDONINE [Concomitant]
     Dosage: 10 MG, 1X/DAY
     Route: 048
     Dates: end: 20081121
  22. GLUFAST [Concomitant]
     Indication: DIABETES MELLITUS
     Dosage: 10 MG, 2X/DAY
     Route: 048
     Dates: start: 20070907, end: 20081121
  23. SELBEX [Concomitant]
     Indication: PROPHYLAXIS AGAINST GASTROINTESTINAL ULCER
     Dosage: 50 MG, 3X/DAY
     Route: 048
     Dates: start: 20070907, end: 20081121
  24. MAGLAX [Concomitant]
     Indication: CONSTIPATION
     Dosage: 330 MG, 3X/DAY
     Route: 048
     Dates: start: 20070907, end: 20081121
  25. ITRACONAZOLE [Concomitant]
     Dosage: 100 MG, 1X/DAY, AFTER BREAKFAST
     Route: 048

REACTIONS (4)
  - Systemic mycosis [Recovered/Resolved]
  - Drug interaction [Recovered/Resolved]
  - Drug level increased [Unknown]
  - Drug level increased [Unknown]
